FAERS Safety Report 9547538 (Version 1)
Quarter: 2013Q3

REPORT INFORMATION
  Report Type: Spontaneous
  Country: US (occurrence: None)
  Receive Date: 20130923
  Receipt Date: 20130923
  Transmission Date: 20140515
  Serious: Yes (Life-Threatening, Hospitalization)
  Sender: FDA-Public Use
  Company Number: None

PATIENT
  Age: 85 Year
  Sex: Female
  Weight: 78.02 kg

DRUGS (2)
  1. HYDROCODONE-ACETAMINOPHEN [Suspect]
     Indication: SPINAL COMPRESSION FRACTURE
     Dosage: 1 TAB=10-325MG EVERY 4 HRS
     Dates: start: 20130401, end: 20130417
  2. HYDROCODONE-ACETAMINOPHEN [Suspect]
     Dosage: 1 TAB=10-325MG EVERY 4 HRS
     Dates: start: 20130401, end: 20130417

REACTIONS (4)
  - Nausea [None]
  - Hypersensitivity [None]
  - Hallucination [None]
  - Overdose [None]
